FAERS Safety Report 4800488-8 (Version None)
Quarter: 2005Q4

REPORT INFORMATION
  Report Type: 
  Country: None (occurrence: None)
  Receive Date: 20051013
  Receipt Date: 20050922
  Transmission Date: 20060501
  Serious: Yes (Hospitalization)
  Sender: FDA-Public Use
  Company Number: DE_050916900

PATIENT
  Age: 75 Year
  Sex: Male
  Weight: 29.4838 kg

DRUGS (4)
  1. ZYPREXA [Suspect]
     Indication: ABNORMAL BEHAVIOUR
     Dosage: 10 MG/ 2 DAY
     Dates: start: 20050905, end: 20050905
  2. CARBAMAZEPINE [Concomitant]
  3. SEROQUEL [Concomitant]
  4. LORAZEPAM [Concomitant]

REACTIONS (3)
  - CATATONIA [None]
  - OEDEMA [None]
  - SOMNOLENCE [None]
